FAERS Safety Report 6923177-2 (Version None)
Quarter: 2010Q3

REPORT INFORMATION
  Report Type: 
  Country: None (occurrence: None)
  Receive Date: 20100813
  Receipt Date: 20100714
  Transmission Date: 20110219
  Serious: Yes (Death, Hospitalization, Other)
  Sender: FDA-Public Use
  Company Number: JP-ROCHE-717112

PATIENT
  Sex: Female
  Weight: 47 kg

DRUGS (10)
  1. ROCEPHIN [Suspect]
     Indication: PNEUMONIA
     Route: 042
     Dates: start: 20100520, end: 20100520
  2. AVASTIN [Suspect]
     Indication: LUNG ADENOCARCINOMA METASTATIC
     Dosage: THREE COURSES
     Route: 041
     Dates: start: 20100323, end: 20100506
  3. NEUTROGIN [Suspect]
     Indication: NEUTROPHIL COUNT DECREASED
     Route: 042
     Dates: start: 20100518, end: 20100518
  4. GARENOXACIN MESILATE [Suspect]
     Indication: PNEUMONIA
     Dosage: DRUG REORTED AS: GENINAX
     Route: 048
     Dates: start: 20100518, end: 20100521
  5. LENDORMIN [Concomitant]
     Dosage: DOSAGE UNCERTAIN
     Route: 048
  6. PROTECADIN [Concomitant]
     Route: 048
     Dates: start: 20100318, end: 20100525
  7. GOSHAJINKIGAN [Concomitant]
     Dosage: FOR: GRANULATED POWDER
     Route: 048
     Dates: start: 20100427, end: 20100525
  8. PRIMPERAN TAB [Concomitant]
     Dosage: DOSE FORM: UNCERTAINITY AND DOSE: UNCERTAIN
  9. LOXONIN [Concomitant]
     Dosage: DOSE AND FORM: UNCERTAIN
  10. RESTAMIN [Concomitant]
     Dosage: DOSE UNCERTAIN
     Route: 048

REACTIONS (6)
  - CEREBRAL HAEMORRHAGE [None]
  - DISEASE PROGRESSION [None]
  - DIZZINESS [None]
  - MENINGISM [None]
  - SUBCUTANEOUS HAEMATOMA [None]
  - VERTIGO [None]
